FAERS Safety Report 10740785 (Version 1)
Quarter: 2015Q1

REPORT INFORMATION
  Report Type: Report from Study
  Country: BR (occurrence: BR)
  Receive Date: 20150127
  Receipt Date: 20150127
  Transmission Date: 20150721
  Serious: Yes (Other)
  Sender: FDA-Public Use
  Company Number: BR-ROCHE-1526263

PATIENT
  Age: 59 Year
  Sex: Male
  Weight: 93 kg

DRUGS (4)
  1. MICARDIS [Concomitant]
     Active Substance: TELMISARTAN
  2. CONCOR [Concomitant]
     Active Substance: BISOPROLOL FUMARATE
  3. ACTEMRA [Suspect]
     Active Substance: TOCILIZUMAB
     Indication: RHEUMATOID ARTHRITIS
     Route: 042
     Dates: start: 20141120
  4. LIPIDIL [Concomitant]
     Active Substance: FENOFIBRATE

REACTIONS (2)
  - Cellulitis [Not Recovered/Not Resolved]
  - Silent myocardial infarction [Unknown]

NARRATIVE: CASE EVENT DATE: 201412
